FAERS Safety Report 5625216-8 (Version None)
Quarter: 2008Q1

REPORT INFORMATION
  Report Type: 
  Country: None (occurrence: None)
  Receive Date: 20080208
  Receipt Date: 20080131
  Transmission Date: 20080703
  Serious: No
  Sender: FDA-Public Use
  Company Number: LTI2007A00182

PATIENT
  Sex: Female

DRUGS (2)
  1. ACTOS [Suspect]
     Dosage: ORAL
     Route: 048
     Dates: start: 20040101
  2. AVANDIA [Concomitant]

REACTIONS (2)
  - BEDRIDDEN [None]
  - SPINAL FRACTURE [None]
